FAERS Safety Report 11181339 (Version 1)
Quarter: 2015Q2

REPORT INFORMATION
  Report Type: Spontaneous
  Country: None (occurrence: None)
  Receive Date: 20150610
  Receipt Date: 20150610
  Transmission Date: 20150821
  Serious: Yes (Hospitalization)
  Sender: FDA-Public Use
  Company Number: None

PATIENT
  Age: 51 Year
  Sex: Female
  Weight: 58.6 kg

DRUGS (9)
  1. ATIVAN [Concomitant]
     Active Substance: LORAZEPAM
  2. MICARDIS [Concomitant]
     Active Substance: TELMISARTAN
  3. ABILIFY [Concomitant]
     Active Substance: ARIPIPRAZOLE
  4. JANUVIA [Concomitant]
     Active Substance: SITAGLIPTIN PHOSPHATE
  5. INVOKANA [Suspect]
     Active Substance: CANAGLIFLOZIN
  6. WELLBUTRIN XL [Concomitant]
     Active Substance: BUPROPION HYDROCHLORIDE
  7. LEXAPRO [Concomitant]
     Active Substance: ESCITALOPRAM OXALATE
  8. BUSPIRONE HCL [Concomitant]
     Active Substance: BUSPIRONE HYDROCHLORIDE
  9. LIPITOR [Concomitant]
     Active Substance: ATORVASTATIN CALCIUM

REACTIONS (7)
  - Diabetic ketoacidosis [None]
  - Pyelonephritis [None]
  - Renal tubular acidosis [None]
  - Hypovolaemia [None]
  - Gastroenteritis [None]
  - Metabolic acidosis [None]
  - Hypophagia [None]

NARRATIVE: CASE EVENT DATE: 20150428
